FAERS Safety Report 10415384 (Version 3)
Quarter: 2014Q4

REPORT INFORMATION
  Report Type: Spontaneous
  Country: CN (occurrence: CN)
  Receive Date: 20140828
  Receipt Date: 20141002
  Transmission Date: 20150528
  Serious: Yes (Other)
  Sender: FDA-Public Use
  Company Number: CN-NOVOPROD-419728

PATIENT

DRUGS (2)
  1. NOVOLIN [Suspect]
     Active Substance: INSULIN HUMAN
     Dosage: 20 IU (2 HOURS AFTER SUPPER)
     Route: 058
     Dates: start: 20140816
  2. NOVOLIN [Suspect]
     Active Substance: INSULIN HUMAN
     Indication: PRODUCT USED FOR UNKNOWN INDICATION
     Dosage: 20 IU (BEFORE SUPPER)
     Route: 058
     Dates: start: 20140816

REACTIONS (4)
  - Movement disorder [Unknown]
  - Extra dose administered [Unknown]
  - Product quality issue [Unknown]
  - Blood glucose increased [Recovering/Resolving]

NARRATIVE: CASE EVENT DATE: 20140816
